FAERS Safety Report 8527553 (Version 7)
Quarter: 2013Q2

REPORT INFORMATION
  Report Type: Spontaneous
  Country: US (occurrence: US)
  Receive Date: 20120424
  Receipt Date: 20130606
  Transmission Date: 20140414
  Serious: No
  Sender: FDA-Public Use
  Company Number: US-PFIZER INC-2012096150

PATIENT
  Age: 79 Year
  Sex: Female
  Weight: 58.1 kg

DRUGS (9)
  1. XALKORI [Suspect]
     Indication: LUNG NEOPLASM MALIGNANT
     Dosage: 250 MG, 2X/DAY
     Route: 048
     Dates: start: 201201
  2. XALKORI [Suspect]
     Dosage: UNK
  3. XALKORI [Suspect]
     Dosage: UNK
  4. XALKORI [Suspect]
     Dosage: UNK
  5. XALKORI [Suspect]
     Dosage: 250 MG, UNK
     Dates: start: 20130115
  6. XALKORI [Suspect]
     Dosage: 250 MG, UNK
  7. XALKORI [Suspect]
     Dosage: 250 MG, 2X/DAY
  8. LOSARTAN [Concomitant]
     Indication: HYPERTENSION
     Dosage: 100 MG, DAILY
     Route: 048
  9. AMLODIPINE BESILATE [Concomitant]
     Indication: HYPERTENSION
     Dosage: 25 MG, DAILY
     Route: 048

REACTIONS (3)
  - Constipation [Unknown]
  - Headache [Unknown]
  - Oedema peripheral [Unknown]
